FAERS Safety Report 17206814 (Version 1)
Quarter: 2019Q4

REPORT INFORMATION
  Report Type: Spontaneous
  Country: NL (occurrence: NL)
  Receive Date: 20191227
  Receipt Date: 20191227
  Transmission Date: 20200122
  Serious: Yes (Other)
  Sender: FDA-Public Use
  Company Number: NL-MYLANLABS-2019M1126848

PATIENT
  Sex: Female

DRUGS (1)
  1. AZATHIOPRINE. [Suspect]
     Active Substance: AZATHIOPRINE
     Indication: CROHN^S DISEASE
     Dosage: 1DD 2 STUKS
     Route: 048
     Dates: start: 20160825

REACTIONS (3)
  - Maternal exposure during pregnancy [Recovered/Resolved]
  - Cholestasis [Recovered/Resolved]
  - Foetal death [Recovered/Resolved]
